FAERS Safety Report 10466777 (Version 5)
Quarter: 2016Q2

REPORT INFORMATION
  Report Type: Spontaneous
  Country: US (occurrence: US)
  Receive Date: 20140922
  Receipt Date: 20160419
  Transmission Date: 20160815
  Serious: Yes (Other)
  Sender: FDA-Public Use
  Company Number: US-PFIZER INC-2014260038

PATIENT
  Age: 52 Year
  Sex: Female

DRUGS (11)
  1. LEVOXYL [Concomitant]
     Active Substance: LEVOTHYROXINE SODIUM
     Dosage: 100 UG, DAILY
     Route: 048
  2. FLEXERIL [Concomitant]
     Active Substance: CYCLOBENZAPRINE HYDROCHLORIDE
     Indication: MUSCLE SPASMS
     Dosage: 10 MG, 1X/DAY
     Route: 048
  3. LYRICA [Suspect]
     Active Substance: PREGABALIN
     Indication: PAIN
     Dosage: 300 MG, 2X/DAY
     Route: 048
     Dates: start: 2000
  4. DITROPAN [Concomitant]
     Active Substance: OXYBUTYNIN CHLORIDE
     Dosage: 5 MG, 3X/DAY
     Route: 048
  5. SYNTHROID [Concomitant]
     Active Substance: LEVOTHYROXINE SODIUM
     Dosage: 100 UG, DAILY
     Route: 048
  6. LEVOXYL [Concomitant]
     Active Substance: LEVOTHYROXINE SODIUM
     Dosage: 112 UG, DAILY
     Route: 048
  7. MOBIC [Concomitant]
     Active Substance: MELOXICAM
     Dosage: 15 MG, DAILY
     Route: 048
  8. LEVOTHYROXINE SODIUM. [Suspect]
     Active Substance: LEVOTHYROXINE SODIUM
     Dosage: 100 ?G, 1X/DAY
     Dates: start: 2006
  9. SYNTHROID [Concomitant]
     Active Substance: LEVOTHYROXINE SODIUM
     Dosage: 112 UG, DAILY
     Route: 048
  10. LYRICA [Suspect]
     Active Substance: PREGABALIN
     Dosage: 300 MG, 2X/DAY
     Route: 048
     Dates: start: 20160310
  11. ULTRAM [Concomitant]
     Active Substance: TRAMADOL HYDROCHLORIDE
     Dosage: 50 MG, AS NEEDED (EVERY 6 HOURS)
     Route: 048

REACTIONS (20)
  - Cough [Unknown]
  - Sinusitis [Unknown]
  - Chest pain [Unknown]
  - Eye pruritus [Unknown]
  - Depression [Unknown]
  - Fatigue [Unknown]
  - Headache [Unknown]
  - Ear discomfort [Unknown]
  - Ocular hyperaemia [Unknown]
  - Ear pain [Unknown]
  - Paranasal sinus discomfort [Unknown]
  - Dyspnoea [Unknown]
  - Eye haemorrhage [Unknown]
  - Thyroid disorder [Not Recovered/Not Resolved]
  - Oropharyngeal pain [Unknown]
  - Ear pruritus [Unknown]
  - Eye disorder [Unknown]
  - Eye pain [Unknown]
  - Wheezing [Unknown]
  - Insomnia [Unknown]
